FAERS Safety Report 5592825-4 (Version None)
Quarter: 2008Q1

REPORT INFORMATION
  Report Type: 
  Country: None (occurrence: None)
  Receive Date: 20080115
  Receipt Date: 20080108
  Transmission Date: 20080703
  Serious: Yes (Death)
  Sender: FDA-Public Use
  Company Number: 163-21880-07110847

PATIENT
  Age: 79 Year
  Sex: Female

DRUGS (6)
  1. REVLIMID [Suspect]
     Indication: MULTIPLE MYELOMA
     Dosage: 15 MG, QHS, ORAL, 15 MG, QHS X21 DAYS, 7 DAYS OFF, ORAL
     Route: 048
     Dates: start: 20061101, end: 20070109
  2. REVLIMID [Suspect]
     Indication: MULTIPLE MYELOMA
     Dosage: 15 MG, QHS, ORAL, 15 MG, QHS X21 DAYS, 7 DAYS OFF, ORAL
     Route: 048
     Dates: start: 20070220, end: 20070727
  3. DECADRON [Suspect]
     Indication: DRUG USE FOR UNKNOWN INDICATION
     Dosage: ON AND OFF
     Dates: start: 20050715, end: 20070701
  4. NEXIUM [Concomitant]
  5. VICODIN [Concomitant]
  6. PROCRIT [Concomitant]

REACTIONS (6)
  - DISEASE PROGRESSION [None]
  - GASTRITIS EROSIVE [None]
  - MULTIPLE MYELOMA [None]
  - OESOPHAGEAL HYPOMOTILITY [None]
  - OESOPHAGEAL STENOSIS [None]
  - OESOPHAGITIS [None]
